FAERS Safety Report 23376288 (Version 1)
Quarter: 2024Q1

REPORT INFORMATION
  Report Type: Spontaneous
  Country: US (occurrence: US)
  Receive Date: 20240108
  Receipt Date: 20240108
  Transmission Date: 20240409
  Serious: No
  Sender: FDA-Public Use
  Company Number: US-TLX-2023000127

PATIENT
  Age: 83 Year
  Sex: Male
  Weight: 104.32 kg

DRUGS (1)
  1. ILLUCCIX [Suspect]
     Active Substance: GALLIUM GA-68 GOZETOTIDE
     Indication: Product used for unknown indication
     Dosage: TIME OF INJECTION: 12:50, INJECTED ACTIVITY (ADMINISTERED DOSE): 6.0 MCI
     Route: 040
     Dates: start: 20230908, end: 20230908

REACTIONS (1)
  - Vomiting [Recovered/Resolved]

NARRATIVE: CASE EVENT DATE: 20230908
